FAERS Safety Report 8240064-0 (Version None)
Quarter: 2012Q1

REPORT INFORMATION
  Report Type: 
  Country: None (occurrence: None)
  Receive Date: 20120328
  Receipt Date: 20120322
  Transmission Date: 20120608
  Serious: Yes (Hospitalization)
  Sender: FDA-Public Use
  Company Number: US-VERTEX PHARMACEUTICALS INC.-AE-2012-004212

PATIENT
  Sex: Female

DRUGS (5)
  1. PEGASYS [Concomitant]
     Indication: HEPATITIS C
     Route: 058
     Dates: start: 20111228
  2. INCIVEK [Suspect]
     Indication: HEPATITIS C
     Route: 048
     Dates: start: 20111228, end: 20120314
  3. PEGASYS [Concomitant]
     Route: 058
     Dates: start: 20120201
  4. RIBAVIRIN [Concomitant]
     Indication: HEPATITIS C
     Route: 048
     Dates: start: 20111228
  5. RIBAVIRIN [Concomitant]
     Route: 048
     Dates: start: 20120101

REACTIONS (12)
  - DIZZINESS [None]
  - ASTHENIA [None]
  - ANAEMIA [None]
  - DYSPNOEA [None]
  - WHITE BLOOD CELL COUNT DECREASED [None]
  - PAIN [None]
  - DEPRESSION [None]
  - INSOMNIA [None]
  - ANXIETY [None]
  - COUGH [None]
  - HYPOTENSION [None]
  - IRRITABILITY [None]
